FAERS Safety Report 9417512 (Version 1)
Quarter: 2013Q3

REPORT INFORMATION
  Report Type: Spontaneous
  Country: US (occurrence: US)
  Receive Date: 20130724
  Receipt Date: 20130724
  Transmission Date: 20140515
  Serious: No
  Sender: FDA-Public Use
  Company Number: US-BRISTOL-MYERS SQUIBB COMPANY-19052257

PATIENT
  Sex: Male

DRUGS (3)
  1. ELIQUIS [Suspect]
     Dates: start: 201306
  2. METOPROLOL [Concomitant]
  3. VYTORIN [Concomitant]

REACTIONS (1)
  - Blood glucose increased [Unknown]
